FAERS Safety Report 4950074-4 (Version None)
Quarter: 2006Q1

REPORT INFORMATION
  Report Type: 
  Country: None (occurrence: None)
  Receive Date: 20060320
  Receipt Date: 20060320
  Transmission Date: 20060701
  Serious: No
  Sender: FDA-Public Use
  Company Number: None

PATIENT
  Age: 45 Year
  Sex: Male
  Weight: 98.8842 kg

DRUGS (2)
  1. HALOPERIDOL [Suspect]
     Dosage: 100MG  Q4W  IM
     Route: 030
  2. HALOPERIDOL [Suspect]
     Dosage: 20MG QD PO
     Route: 048

REACTIONS (1)
  - DYSTONIA [None]
